FAERS Safety Report 6245978-9 (Version None)
Quarter: 2009Q2

REPORT INFORMATION
  Report Type: 
  Country: None (occurrence: None)
  Receive Date: 20090626
  Receipt Date: 20081111
  Transmission Date: 20091009
  Serious: No
  Sender: FDA-Public Use
  Company Number: A0748581A

PATIENT
  Age: 64 Year
  Sex: Female

DRUGS (8)
  1. IMITREX [Suspect]
     Indication: MIGRAINE
     Dosage: 100MG VARIABLE DOSE
     Route: 048
     Dates: start: 20030101
  2. DILTIAZEM [Concomitant]
  3. ATIVAN [Concomitant]
  4. FLONASE [Concomitant]
  5. VITAMINS [Concomitant]
  6. BIOTIN [Concomitant]
  7. CALCIUM [Concomitant]
  8. XANAX [Concomitant]

REACTIONS (5)
  - BLOOD PRESSURE INCREASED [None]
  - DRUG INEFFECTIVE [None]
  - MICTURITION URGENCY [None]
  - PALPITATIONS [None]
  - PRODUCT QUALITY ISSUE [None]
